FAERS Safety Report 7285045-9 (Version None)
Quarter: 2011Q1

REPORT INFORMATION
  Report Type: 
  Country: None (occurrence: None)
  Receive Date: 20110210
  Receipt Date: 20110203
  Transmission Date: 20110831
  Serious: Yes (Hospitalization, Other)
  Sender: FDA-Public Use
  Company Number: DE-PFIZER INC-2010014957

PATIENT
  Age: 47 Year
  Sex: Male
  Weight: 83 kg

DRUGS (16)
  1. SOMATROPIN [Suspect]
     Indication: GROWTH HORMONE DEFICIENCY
     Dosage: 0.4 MG, 1X/DAY
     Route: 058
     Dates: start: 19970428, end: 20100128
  2. DESMOGALEN [Concomitant]
     Indication: BLOOD THYROID STIMULATING HORMONE DECREASED
     Dosage: 0.1 UNK, 1X/DAY
     Route: 045
     Dates: start: 20050927
  3. PRIMOGONYL [Concomitant]
     Indication: HYPOGONADISM
  4. DESMOGALEN [Concomitant]
     Indication: PRIMARY HYPOTHYROIDISM
  5. NEBIDO [Concomitant]
     Indication: BLOOD LUTEINISING HORMONE DECREASED
     Dosage: 1000 MG, EVERY 3 MONTHS
     Route: 030
     Dates: start: 20060202
  6. DESMOPRESSIN ACETATE [Concomitant]
     Dosage: UNK
     Dates: start: 20050311
  7. FOLLICLE-STIMULATING HORMONE, HUMAN [Concomitant]
     Indication: BLOOD FOLLICLE STIMULATING HORMONE DECREASED
  8. MENOGON [Concomitant]
     Indication: BLOOD LUTEINISING HORMONE DECREASED
     Dosage: 75 IU, WEEKLY
     Dates: start: 19941001
  9. NEBIDO [Concomitant]
     Indication: HYPOGONADISM
  10. MENOGON [Concomitant]
     Indication: HYPOGONADISM
  11. PRIMOGONYL [Concomitant]
     Indication: BLOOD FOLLICLE STIMULATING HORMONE DECREASED
  12. FOLLICLE-STIMULATING HORMONE, HUMAN [Concomitant]
     Indication: HYPOGONADISM
  13. MENOGON [Concomitant]
     Indication: BLOOD FOLLICLE STIMULATING HORMONE DECREASED
  14. NEBIDO [Concomitant]
     Indication: BLOOD FOLLICLE STIMULATING HORMONE DECREASED
  15. FOLLICLE-STIMULATING HORMONE, HUMAN [Concomitant]
     Indication: BLOOD LUTEINISING HORMONE DECREASED
     Dosage: 75 IU, WEEKLY
     Dates: start: 19941001
  16. PRIMOGONYL [Concomitant]
     Indication: BLOOD LUTEINISING HORMONE DECREASED
     Dosage: 500 IU, UNK
     Dates: start: 19941001

REACTIONS (2)
  - CHONDROSARCOMA [None]
  - CHONDROSARCOMA RECURRENT [None]
